FAERS Safety Report 12773655 (Version 1)
Quarter: 2016Q3

REPORT INFORMATION
  Report Type: Spontaneous
  Country: AU (occurrence: AU)
  Receive Date: 20160923
  Receipt Date: 20160923
  Transmission Date: 20161109
  Serious: Yes (Other)
  Sender: FDA-Public Use
  Company Number: AU-BAXTER-2016BAX047847

PATIENT
  Sex: Male

DRUGS (4)
  1. BAXTER 5% GLUCOSE 25G_500ML INJECTION BP BAG AHB0063 [Suspect]
     Active Substance: DEXTROSE
     Dosage: WITH 280MG OF OXALIPLATIN
     Route: 065
  2. BAXTER 5% GLUCOSE 25G_500ML INJECTION BP BAG AHB0063 [Suspect]
     Active Substance: DEXTROSE
     Indication: MEDICATION DILUTION
     Dosage: WITH 290MG OF OXALIPLATIN
     Route: 065
  3. [PSS GPN] OXALIPLATIN DBL [Suspect]
     Active Substance: OXALIPLATIN
     Indication: PRODUCT USED FOR UNKNOWN INDICATION
     Route: 065
  4. [PSS GPN] OXALIPLATIN DBL [Suspect]
     Active Substance: OXALIPLATIN
     Route: 065

REACTIONS (2)
  - Atrial fibrillation [Unknown]
  - Syncope [Recovered/Resolved]

NARRATIVE: CASE EVENT DATE: 20160624
